FAERS Safety Report 9812620 (Version 1)
Quarter: 2014Q1

REPORT INFORMATION
  Report Type: Spontaneous
  Country: US (occurrence: US)
  Receive Date: 20140113
  Receipt Date: 20140113
  Transmission Date: 20141002
  Serious: Yes (Death)
  Sender: FDA-Public Use
  Company Number: US-ASTRAZENECA-2014SE02378

PATIENT
  Age: 57 Year
  Sex: Female

DRUGS (6)
  1. ATENOLOL [Suspect]
     Route: 048
  2. LISINOPRIL [Suspect]
     Route: 048
  3. METFORMIN [Suspect]
     Route: 065
  4. ETHANOL [Suspect]
     Route: 065
  5. COCAINE [Suspect]
     Route: 065
  6. DULOXETINE [Suspect]
     Route: 065

REACTIONS (1)
  - Toxicity to various agents [Fatal]
